FAERS Safety Report 15101216 (Version 2)
Quarter: 2018Q4

REPORT INFORMATION
  Report Type: Report from Study
  Country: BR (occurrence: BR)
  Receive Date: 20180703
  Receipt Date: 20181003
  Transmission Date: 20190204
  Serious: Yes (Congenital Anomaly, Other)
  Sender: FDA-Public Use
  Company Number: PHHY2018BR030691

PATIENT
  Sex: Male

DRUGS (3)
  1. COSENTYX [Suspect]
     Active Substance: SECUKINUMAB
     Indication: FOETAL EXPOSURE DURING PREGNANCY
     Dosage: MATERNAL DOSE: 300 MG, QW
     Route: 064
  2. NORDETTE [Concomitant]
     Active Substance: ETHINYL ESTRADIOL\LEVONORGESTREL
     Indication: FOETAL EXPOSURE DURING PREGNANCY
     Dosage: MATERNAL DOSE: 1 DF, UNK
     Route: 064
  3. COSENTYX [Suspect]
     Active Substance: SECUKINUMAB
     Dosage: MATERNAL DOSE: 2 AMPOULES OF 150 MG, QMO
     Route: 064

REACTIONS (3)
  - Foetal exposure during pregnancy [Unknown]
  - Hernia [Recovering/Resolving]
  - Premature baby [Unknown]
